FAERS Safety Report 5683855-2 (Version None)
Quarter: 2008Q1

REPORT INFORMATION
  Report Type: 
  Country: None (occurrence: None)
  Receive Date: 20080328
  Receipt Date: 20080319
  Transmission Date: 20080703
  Serious: Yes (Life-Threatening, Hospitalization)
  Sender: FDA-Public Use
  Company Number: FR-JNJFOC-20080105637

PATIENT
  Age: 55 Year
  Sex: Male
  Weight: 66 kg

DRUGS (11)
  1. REMICADE [Suspect]
     Route: 042
  2. REMICADE [Suspect]
     Route: 042
  3. REMICADE [Suspect]
     Indication: CROHN'S DISEASE
     Route: 042
  4. METHOTREXATE [Concomitant]
  5. IMUREL [Concomitant]
  6. PLAVIX [Concomitant]
     Indication: ISCHAEMIC HEART DISEASE PROPHYLAXIS
     Route: 048
  7. TENORMIN [Concomitant]
     Indication: ANGINA PECTORIS
     Route: 048
  8. TRIATEC [Concomitant]
     Route: 048
  9. ZOCOR [Concomitant]
  10. NEXIUM [Concomitant]
  11. URSOLVAN [Concomitant]

REACTIONS (6)
  - CARDIAC TAMPONADE [None]
  - CONVULSION [None]
  - FALL [None]
  - JOINT DISLOCATION [None]
  - PERICARDIAL HAEMORRHAGE [None]
  - UPPER LIMB FRACTURE [None]
